FAERS Safety Report 15691547 (Version 1)
Quarter: 2018Q4

REPORT INFORMATION
  Report Type: Spontaneous
  Country: US (occurrence: US)
  Receive Date: 20181205
  Receipt Date: 20181205
  Transmission Date: 20190205
  Serious: Yes (Hospitalization)
  Sender: FDA-Public Use
  Company Number: US-PFIZER INC-2018492511

PATIENT
  Age: 5 Year
  Sex: Female
  Weight: 18.5 kg

DRUGS (15)
  1. VINCRISTINE SULFATE. [Suspect]
     Active Substance: VINCRISTINE SULFATE
     Indication: B PRECURSOR TYPE ACUTE LEUKAEMIA
     Dosage: 1.5 MG/M2 (PER DOSE) UNK
  2. VINCRISTINE SULFATE. [Suspect]
     Active Substance: VINCRISTINE SULFATE
     Dosage: 1.5 MG/M2, WEEKLY (ON DAYS 1, 8, AND 15)
  3. DEXAMETHASONE. [Concomitant]
     Active Substance: DEXAMETHASONE
     Indication: B PRECURSOR TYPE ACUTE LEUKAEMIA
     Dosage: UNK
  4. GABAPENTIN. [Suspect]
     Active Substance: GABAPENTIN
     Dosage: 20 MG/KG, DAILY
  5. PEG/L-ASPARAGINASE [Concomitant]
     Active Substance: PEGASPARGASE
     Indication: B PRECURSOR TYPE ACUTE LEUKAEMIA
     Dosage: UNK
  6. METHOTREXATE. [Concomitant]
     Active Substance: METHOTREXATE
     Indication: B PRECURSOR TYPE ACUTE LEUKAEMIA
     Dosage: HIGH DOSE
  7. METHOTREXATE. [Concomitant]
     Active Substance: METHOTREXATE
     Dosage: 20 MG/M2, (ON DAYS 1, 8, 15, AND 22)
  8. GABAPENTIN. [Suspect]
     Active Substance: GABAPENTIN
     Dosage: 15 MG/KG, DAILY
  9. POSACONAZOLE [Suspect]
     Active Substance: POSACONAZOLE
     Indication: MUCORMYCOSIS
     Dosage: 18 MG/KG, 3X/DAY (DIVIDED EVERY 8 HOURS, AND UNDERWENT A RIGHT LOWER LOBE RESECTION)
     Route: 048
  10. AMBISOME [Concomitant]
     Active Substance: AMPHOTERICIN B
     Indication: B PRECURSOR TYPE ACUTE LEUKAEMIA
     Dosage: 10 MG/KG, DAILY (6-WEEK TREATMENT)
     Route: 042
  11. DAUNORUBICIN [Concomitant]
     Active Substance: DAUNORUBICIN
     Indication: B PRECURSOR TYPE ACUTE LEUKAEMIA
     Dosage: UNK
  12. POSACONAZOLE [Suspect]
     Active Substance: POSACONAZOLE
     Dosage: 24 MG/KG, DAILY (DIVIDED 3 TIMES A DAY
     Route: 048
  13. VINCRISTINE SULFATE. [Suspect]
     Active Substance: VINCRISTINE SULFATE
     Dosage: 1.5 MG/M2, CYCLIC (ON DAYS 1 AND 22;)
  14. GABAPENTIN. [Suspect]
     Active Substance: GABAPENTIN
     Indication: NEURALGIA
     Dosage: 10 MG/KG, DAILY
  15. MORPHINE SULFATE. [Suspect]
     Active Substance: MORPHINE SULFATE
     Indication: NEURALGIA
     Dosage: MULTIPLE DOSES
     Route: 042

REACTIONS (2)
  - Constipation [Recovered/Resolved]
  - Gastrointestinal pain [Recovered/Resolved]
